FAERS Safety Report 8314316-X (Version None)
Quarter: 2012Q1

REPORT INFORMATION
  Report Type: 
  Country: None (occurrence: None)
  Receive Date: 20120315
  Receipt Date: 20110323
  Transmission Date: 20120608
  Serious: Yes (Other)
  Sender: FDA-Public Use
  Company Number: PHHY2011US24954

PATIENT
  Age: 55 Year
  Sex: Female

DRUGS (9)
  1. AMBIEN [Concomitant]
  2. ALBUTEROL [Concomitant]
  3. VITAMIN TAB [Concomitant]
  4. VITAMIN B12 [Concomitant]
  5. ALLEGRA [Concomitant]
  6. GILENYA [Suspect]
     Indication: MULTIPLE SCLEROSIS
     Dosage: 0.5 MG, QD, ORAL
     Route: 048
     Dates: start: 20110223, end: 20110309
  7. VITAMIN D [Concomitant]
  8. CYMBALTA [Concomitant]
  9. WELLBUTRIN [Concomitant]

REACTIONS (10)
  - INFLUENZA LIKE ILLNESS [None]
  - FATIGUE [None]
  - HERPES ZOSTER [None]
  - LETHARGY [None]
  - DISORIENTATION [None]
  - ASTHENIA [None]
  - FEELING ABNORMAL [None]
  - HEADACHE [None]
  - PAIN [None]
  - BACK PAIN [None]
